FAERS Safety Report 10379495 (Version 1)
Quarter: 2014Q3

REPORT INFORMATION
  Report Type: Report from Study
  Country: US (occurrence: US)
  Receive Date: 20140812
  Receipt Date: 20140812
  Transmission Date: 20150326
  Serious: Yes (Death, Other)
  Sender: FDA-Public Use
  Company Number: US-ROXANE LABORATORIES, INC.-2014-BI-36035GD

PATIENT
  Sex: Male

DRUGS (3)
  1. PREDNISONE. [Suspect]
     Active Substance: PREDNISONE
     Indication: EXPOSURE DURING PREGNANCY
     Route: 064
  2. MYCOPHENOLATE MOFETIL. [Suspect]
     Active Substance: MYCOPHENOLATE MOFETIL
     Indication: EXPOSURE DURING PREGNANCY
     Route: 064
  3. WARFARIN SODIUM. [Suspect]
     Active Substance: WARFARIN SODIUM
     Indication: EXPOSURE DURING PREGNANCY
     Route: 064

REACTIONS (5)
  - Multi-organ failure [Fatal]
  - Respiratory failure [Fatal]
  - Premature baby [Unknown]
  - Diarrhoea [Unknown]
  - Maternal drugs affecting foetus [None]
